FAERS Safety Report 10078703 (Version 1)
Quarter: 2014Q2

REPORT INFORMATION
  Report Type: Report from Study
  Country: US (occurrence: US)
  Receive Date: 20140415
  Receipt Date: 20140415
  Transmission Date: 20141212
  Serious: Yes (Other)
  Sender: FDA-Public Use
  Company Number: US-SA-2014SA043014

PATIENT
  Age: 62 Year
  Sex: Male

DRUGS (13)
  1. JEVTANA [Suspect]
     Indication: PROSTATE CANCER
     Dosage: 25 MG, 1 IN 3 WEEK
     Route: 042
     Dates: start: 20140217
  2. AMBIEN [Concomitant]
     Route: 048
  3. VITAMIN B [Concomitant]
     Route: 048
  4. FLOMAX [Concomitant]
     Route: 048
  5. COMPAZINE [Concomitant]
     Route: 048
  6. DELTASONE [Concomitant]
     Route: 048
  7. NEULASTA [Concomitant]
     Route: 058
  8. ROXICODONE [Concomitant]
     Route: 048
  9. ZOFRAN [Concomitant]
     Route: 048
  10. DURAGESIC [Concomitant]
     Route: 062
  11. VITAMIN B12 [Concomitant]
     Route: 048
  12. CALCIUM CARBONATE W/VITAMIN D NOS [Concomitant]
     Route: 048
  13. ZYTIGA [Concomitant]
     Route: 048

REACTIONS (1)
  - Embolism [Not Recovered/Not Resolved]
